FAERS Safety Report 9282150 (Version 1)
Quarter: 2013Q2

REPORT INFORMATION
  Report Type: Spontaneous
  Country: US (occurrence: None)
  Receive Date: 20130508
  Receipt Date: 20130508
  Transmission Date: 20140414
  Serious: Yes (Hospitalization)
  Sender: FDA-Public Use
  Company Number: None

PATIENT
  Age: 48 None
  Sex: Female
  Weight: 73.2 kg

DRUGS (18)
  1. THYMOGLOBULIN [Suspect]
     Dosage: QD X 5 DRIP
     Route: 042
     Dates: start: 20110224, end: 20110228
  2. ACYCLOUR [Concomitant]
  3. AMLODIPINE [Concomitant]
  4. CALCIUM CAMOONOUR [Concomitant]
  5. DEOUSATE [Concomitant]
  6. FEXOFERNADINE [Concomitant]
  7. FLUTICASONEISAL METREROL [Concomitant]
  8. METOPOLOZ [Concomitant]
  9. MONTELLUKAST [Concomitant]
  10. MULTIVITAMINS [Concomitant]
  11. MYCOPHENOLATE [Concomitant]
  12. MYSTATIN [Concomitant]
  13. OMEPRAZONE [Concomitant]
  14. PRANASTATIN [Concomitant]
  15. PREDINISONE [Concomitant]
  16. BACTRIM [Concomitant]
  17. TACROLIMUS [Concomitant]
  18. VENLAFAXINE [Concomitant]

REACTIONS (3)
  - Malaise [None]
  - Arthralgia [None]
  - Asthenia [None]
